FAERS Safety Report 5623230-X (Version None)
Quarter: 2008Q1

REPORT INFORMATION
  Report Type: 
  Country: None (occurrence: None)
  Receive Date: 20080212
  Receipt Date: 20080131
  Transmission Date: 20080703
  Serious: Yes (Hospitalization)
  Sender: FDA-Public Use
  Company Number: US-ROCHE-545380

PATIENT
  Age: 60 Year
  Sex: Female
  Weight: 96.5 kg

DRUGS (20)
  1. METHOXY POLYETHYLENE GLYCOL-EPOETIN BETA [Suspect]
     Dosage: ROUTE REPORTED AS IVP.
     Route: 042
     Dates: start: 20050810
  2. METHOXY POLYETHYLENE GLYCOL-EPOETIN BETA [Suspect]
     Route: 042
  3. SODIUM BICARBONATE [Concomitant]
  4. ROSIGLITAZONE [Concomitant]
  5. METOPROLOL TARTRATE [Concomitant]
  6. NEPHRO-VITE [Concomitant]
  7. CLOZAPINE [Concomitant]
  8. FUROSEMIDE [Concomitant]
  9. LEVOTHYROXINE SODIUM [Concomitant]
     Dosage: DOSE REPORTED AS 0.2 (UNIT NOT PROVIDED)
  10. COTAZYM [Concomitant]
  11. VITAMIN B [Concomitant]
  12. DIVALPROEX [Concomitant]
  13. DIPHENOXYLATE [Concomitant]
  14. ACETAMINOPHEN [Concomitant]
  15. HEPARIN [Concomitant]
  16. LORAZEPAM [Concomitant]
  17. AMBIEN [Concomitant]
  18. SEVELAMER HYDROCHLORIDE [Concomitant]
  19. DEPAKOTE [Concomitant]
  20. LOVASTATIN [Concomitant]

REACTIONS (1)
  - ATRIAL FIBRILLATION [None]
